FAERS Safety Report 17357487 (Version 1)
Quarter: 2020Q1

REPORT INFORMATION
  Report Type: Spontaneous
  Country: AU (occurrence: AU)
  Receive Date: 20200131
  Receipt Date: 20200131
  Transmission Date: 20200409
  Serious: Yes (Other)
  Sender: FDA-Public Use
  Company Number: AU-009507513-2001AUS007402

PATIENT
  Age: 68 Year
  Sex: Female

DRUGS (18)
  1. AVANZA [Suspect]
     Active Substance: MIRTAZAPINE
     Indication: ANXIOLYTIC THERAPY
  2. SEROQUEL [Suspect]
     Active Substance: QUETIAPINE FUMARATE
     Indication: ANXIOLYTIC THERAPY
     Dosage: UNK
     Route: 048
     Dates: start: 201201, end: 20120315
  3. SEROQUEL [Suspect]
     Active Substance: QUETIAPINE FUMARATE
     Indication: DEPRESSION
  4. SEROQUEL [Suspect]
     Active Substance: QUETIAPINE FUMARATE
     Indication: DEPRESSION
  5. SEROQUEL [Suspect]
     Active Substance: QUETIAPINE FUMARATE
     Indication: DEPRESSION
  6. RIVOTRIL [Concomitant]
     Active Substance: CLONAZEPAM
     Indication: ANXIOLYTIC THERAPY
     Dosage: 6 MILLIGRAM, QD
  7. SEROQUEL [Suspect]
     Active Substance: QUETIAPINE FUMARATE
     Indication: ANXIOLYTIC THERAPY
     Dosage: 50 MILLIGRAM, QD
     Route: 048
     Dates: start: 20120904, end: 20121008
  8. DOSULEPIN HYDROCHLORIDE [Concomitant]
     Active Substance: DOTHIEPIN HYDROCHLORIDE
     Indication: DEPRESSION
  9. SEROQUEL [Suspect]
     Active Substance: QUETIAPINE FUMARATE
     Indication: ANXIOLYTIC THERAPY
     Dosage: 100 MILLIGRAM, QD
     Route: 048
     Dates: start: 20100315, end: 20120903
  10. SEROQUEL [Suspect]
     Active Substance: QUETIAPINE FUMARATE
     Indication: ANXIOLYTIC THERAPY
     Dosage: 12.5 MILLIGRAM, QD
     Route: 048
  11. SEROQUEL [Suspect]
     Active Substance: QUETIAPINE FUMARATE
     Indication: DEPRESSION
  12. SEROQUEL [Suspect]
     Active Substance: QUETIAPINE FUMARATE
     Indication: DEPRESSION
  13. DOSULEPIN HYDROCHLORIDE [Concomitant]
     Active Substance: DOTHIEPIN HYDROCHLORIDE
     Indication: ANXIOLYTIC THERAPY
  14. NEXIUM [Concomitant]
     Active Substance: ESOMEPRAZOLE MAGNESIUM
     Indication: ABDOMINAL DISCOMFORT
  15. SOMAC [Concomitant]
     Active Substance: PANTOPRAZOLE SODIUM
     Indication: ABDOMINAL DISCOMFORT
  16. AVANZA [Suspect]
     Active Substance: MIRTAZAPINE
     Indication: DEPRESSION
     Dates: start: 20120323
  17. RIVOTRIL [Concomitant]
     Active Substance: CLONAZEPAM
     Indication: DEPRESSION
  18. SEROQUEL [Suspect]
     Active Substance: QUETIAPINE FUMARATE
     Indication: ANXIOLYTIC THERAPY
     Dosage: 25 MILLIGRAM, QD
     Route: 048
     Dates: start: 20121009

REACTIONS (27)
  - Personality change [Not Recovered/Not Resolved]
  - Sensation of foreign body [Recovered/Resolved]
  - Insomnia [Not Recovered/Not Resolved]
  - Gait disturbance [Not Recovered/Not Resolved]
  - Head discomfort [Unknown]
  - Adverse event [Unknown]
  - Dry mouth [Unknown]
  - Intentional product misuse [Unknown]
  - Abdominal discomfort [Not Recovered/Not Resolved]
  - Speech disorder [Unknown]
  - Anxiety [Not Recovered/Not Resolved]
  - Weight increased [Unknown]
  - Constipation [Unknown]
  - Depression [Unknown]
  - Somnolence [Not Recovered/Not Resolved]
  - Dizziness [Unknown]
  - Memory impairment [Unknown]
  - Vision blurred [Not Recovered/Not Resolved]
  - Peripheral swelling [Not Recovered/Not Resolved]
  - Drug ineffective [Not Recovered/Not Resolved]
  - Tremor [Unknown]
  - Heart rate increased [Unknown]
  - Increased appetite [Unknown]
  - Haematochezia [Unknown]
  - Chills [Unknown]
  - Musculoskeletal stiffness [Unknown]
  - Pharyngeal swelling [Not Recovered/Not Resolved]

NARRATIVE: CASE EVENT DATE: 201201
